FAERS Safety Report 7271086-4 (Version None)
Quarter: 2011Q1

REPORT INFORMATION
  Report Type: 
  Country: None (occurrence: None)
  Receive Date: 20110202
  Receipt Date: 20110124
  Transmission Date: 20110831
  Serious: Yes (Other)
  Sender: FDA-Public Use
  Company Number: US-ASTRAZENECA-2011SE03898

PATIENT
  Age: 32 Year
  Sex: Female
  Weight: 62.1 kg

DRUGS (7)
  1. CHANTIX [Interacting]
     Route: 048
     Dates: start: 20110101
  2. KLONOPIN [Interacting]
     Indication: BIPOLAR DISORDER
  3. SEROQUEL [Suspect]
     Indication: BIPOLAR DISORDER
     Route: 048
  4. PROZAC [Interacting]
     Indication: BIPOLAR DISORDER
  5. IBUPROFEN [Concomitant]
  6. CHANTIX [Interacting]
     Indication: SMOKING CESSATION THERAPY
     Route: 048
     Dates: start: 20110101, end: 20110109
  7. NICOTINE [Interacting]

REACTIONS (6)
  - STOMATITIS [None]
  - PERSONALITY CHANGE [None]
  - HOMICIDAL IDEATION [None]
  - ERYTHEMA [None]
  - DRUG INTERACTION [None]
  - FEELING ABNORMAL [None]
